FAERS Safety Report 10677282 (Version 3)
Quarter: 2015Q1

REPORT INFORMATION
  Report Type: Spontaneous
  Country: US (occurrence: US)
  Receive Date: 20141226
  Receipt Date: 20150225
  Transmission Date: 20150720
  Serious: Yes (Hospitalization, Other)
  Sender: FDA-Public Use
  Company Number: US-ASTRAZENECA-2011SE38904

PATIENT
  Age: 37 Year
  Sex: Male
  Weight: 106.6 kg

DRUGS (14)
  1. TRAMADOL [Concomitant]
     Active Substance: TRAMADOL
     Indication: PAIN
     Dosage: 50 MG EVERY SIX HOURS AS NEEDED
     Dates: start: 201407
  2. IMDUR [Concomitant]
     Active Substance: ISOSORBIDE MONONITRATE
     Indication: ANGINA PECTORIS
     Dates: start: 20141210
  3. MECLIZINE [Concomitant]
     Active Substance: MECLIZINE\MECLIZINE HYDROCHLORIDE
     Indication: VERTIGO
     Dates: start: 201410
  4. ASPIRIN. [Concomitant]
     Active Substance: ASPIRIN
     Indication: CARDIAC DISORDER
     Dates: start: 2006
  5. METOPROLOL [Suspect]
     Active Substance: METOPROLOL
     Indication: HYPERTENSION
     Route: 065
     Dates: start: 2006
  6. CRESTOR [Suspect]
     Active Substance: ROSUVASTATIN CALCIUM
     Indication: BLOOD CHOLESTEROL ABNORMAL
     Route: 048
     Dates: end: 2010
  7. BRILINTA [Suspect]
     Active Substance: TICAGRELOR
     Indication: ILL-DEFINED DISORDER
     Route: 048
     Dates: start: 201409
  8. PLAVIX [Concomitant]
     Active Substance: CLOPIDOGREL BISULFATE
  9. NEUROTIN [Concomitant]
     Indication: PAIN
     Dates: start: 2011
  10. NITROGLYCERIN. [Concomitant]
     Active Substance: NITROGLYCERIN
     Indication: CHEST PAIN
     Dates: start: 2009
  11. LIPITOR [Concomitant]
     Active Substance: ATORVASTATIN CALCIUM
     Dates: start: 2010, end: 201409
  12. CRESTOR [Suspect]
     Active Substance: ROSUVASTATIN CALCIUM
     Indication: BLOOD CHOLESTEROL ABNORMAL
     Route: 048
     Dates: start: 2014
  13. PRILOSEC [Suspect]
     Active Substance: OMEPRAZOLE MAGNESIUM
     Indication: GASTROOESOPHAGEAL REFLUX DISEASE
     Route: 048
     Dates: start: 2007
  14. DILANTIN [Concomitant]
     Active Substance: PHENYTOIN
     Indication: SEIZURE
     Dosage: 200 MG IN THE MORNING AND 300 MG AT NIGHT
     Dates: start: 2012

REACTIONS (12)
  - Blood cholesterol abnormal [Unknown]
  - Product use issue [Unknown]
  - Coronary artery disease [Unknown]
  - Metabolic disorder [Not Recovered/Not Resolved]
  - Pain [Not Recovered/Not Resolved]
  - Gastrooesophageal reflux disease [Unknown]
  - Seizure [Unknown]
  - Osteoarthritis [Unknown]
  - Chest pain [Recovered/Resolved]
  - Insomnia [Unknown]
  - Drug ineffective [Unknown]
  - Angina unstable [Unknown]

NARRATIVE: CASE EVENT DATE: 2006
